FAERS Safety Report 8906033 (Version 1)
Quarter: 2012Q4

REPORT INFORMATION
  Report Type: 
  Country: US (occurrence: US)
  Receive Date: 20121112
  Receipt Date: 20121112
  Transmission Date: 20130627
  Serious: No
  Sender: FDA-Public Use
  Company Number: US-PFIZER INC-2012281473

PATIENT
  Sex: Female

DRUGS (2)
  1. GABAPENTIN [Suspect]
     Indication: PAIN
     Dosage: UNK
     Route: 048
     Dates: start: 20120501, end: 2012
  2. GABAPENTIN [Suspect]
     Dosage: 800 mg, 1x/day
     Route: 048
     Dates: start: 2012, end: 20121105

REACTIONS (3)
  - Weight increased [Unknown]
  - Abdominal pain upper [Unknown]
  - Gastritis [Unknown]
